FAERS Safety Report 17431909 (Version 1)
Quarter: 2020Q1

REPORT INFORMATION
  Report Type: Spontaneous
  Country: IT (occurrence: IT)
  Receive Date: 20200218
  Receipt Date: 20200218
  Transmission Date: 20200409
  Serious: Yes (Hospitalization)
  Sender: FDA-Public Use
  Company Number: IT-PFIZER INC-2020062157

PATIENT
  Age: 72 Year
  Sex: Female
  Weight: 45 kg

DRUGS (9)
  1. IMIPENEM [Suspect]
     Active Substance: IMIPENEM
     Dosage: 500 MG, 3X/DAY
     Route: 042
     Dates: start: 20180702
  2. TIGECYCLINE. [Suspect]
     Active Substance: TIGECYCLINE
     Dosage: 100 MG, DAILY (50 MG, 2X PER DAY)
     Route: 042
  3. CLARITHROMYCIN. [Suspect]
     Active Substance: CLARITHROMYCIN
     Dosage: 500 MG, 2X/DAY
     Route: 048
  4. GENTAMICIN. [Suspect]
     Active Substance: GENTAMICIN
     Dosage: UNK
  5. LEVOFLOXACIN. [Suspect]
     Active Substance: LEVOFLOXACIN
     Dosage: 500 MG, PER DAY
     Route: 048
  6. TEICOPLANIN [Suspect]
     Active Substance: TEICOPLANIN
     Dosage: 400 MG, PER DAY
     Route: 042
     Dates: start: 20180702
  7. LINEZOLID. [Suspect]
     Active Substance: LINEZOLID
     Dosage: 600 MG, 2X/DAY(BID )
     Route: 048
  8. AMIKACIN. [Suspect]
     Active Substance: AMIKACIN
     Dosage: 500 MG, 1X/DAY
     Route: 042
  9. VANCOMYCIN [Suspect]
     Active Substance: VANCOMYCIN
     Dosage: UNK

REACTIONS (4)
  - Transaminases increased [Recovered/Resolved]
  - Hepatitis [Recovered/Resolved]
  - Epigastric discomfort [Recovered/Resolved]
  - Pathogen resistance [Recovered/Resolved]
